FAERS Safety Report 4844923-8 (Version None)
Quarter: 2005Q4

REPORT INFORMATION
  Report Type: 
  Country: None (occurrence: None)
  Receive Date: 20051128
  Receipt Date: 20051117
  Transmission Date: 20060501
  Serious: Yes (Death)
  Sender: FDA-Public Use
  Company Number: 2005-10-0305

PATIENT
  Age: 65 Year
  Sex: Female

DRUGS (2)
  1. TEMODAL [Suspect]
     Indication: NEOPLASM MALIGNANT
     Dosage: 120 MG ORAL
     Route: 048
     Dates: end: 20050923
  2. RADIATION THERAPY [Concomitant]

REACTIONS (2)
  - PLATELET COUNT DECREASED [None]
  - WHITE BLOOD CELL COUNT DECREASED [None]
